FAERS Safety Report 4610432-4 (Version None)
Quarter: 2005Q1

REPORT INFORMATION
  Report Type: 
  Country: None (occurrence: None)
  Receive Date: 20050314
  Receipt Date: 20050304
  Transmission Date: 20050727
  Serious: Yes (Other)
  Sender: FDA-Public Use
  Company Number: 2005-03-0152

PATIENT
  Age: 63 Year
  Sex: Female

DRUGS (2)
  1. TEMODAR [Suspect]
     Indication: GLIOBLASTOMA MULTIFORME
     Dosage: 150MG/M2 *; ORAL (SEE IMAGE)
     Route: 048
     Dates: start: 20050113
  2. RADIATION THERAPY [Concomitant]

REACTIONS (2)
  - LEUKAEMIA [None]
  - PANCYTOPENIA [None]
